FAERS Safety Report 5214995-X (Version None)
Quarter: 2007Q1

REPORT INFORMATION
  Report Type: 
  Country: None (occurrence: None)
  Receive Date: 20070119
  Receipt Date: 20070119
  Transmission Date: 20070707
  Serious: Yes (Hospitalization)
  Sender: FDA-Public Use
  Company Number: None

PATIENT
  Sex: Male
  Weight: 2.746 kg

DRUGS (1)
  1. LEXAPRO [Suspect]
     Indication: DEPRESSION
     Dosage: 10MG DAILY PO
     Route: 048
     Dates: start: 20060101, end: 20061231

REACTIONS (5)
  - CAESAREAN SECTION [None]
  - DRUG EXPOSURE DURING PREGNANCY [None]
  - NEONATAL RESPIRATORY DISTRESS SYNDROME [None]
  - PERSISTENT FOETAL CIRCULATION [None]
  - PREMATURE BABY [None]
